FAERS Safety Report 6454409-5 (Version None)
Quarter: 2009Q4

REPORT INFORMATION
  Report Type: 
  Country: None (occurrence: None)
  Receive Date: 20091124
  Receipt Date: 20091112
  Transmission Date: 20100525
  Serious: Yes (Other)
  Sender: FDA-Public Use
  Company Number: PHHY2009JP48367

PATIENT
  Age: 61 Year
  Sex: Male

DRUGS (4)
  1. SIMULECT [Suspect]
     Indication: RENAL TRANSPLANT
     Dosage: UNK
     Dates: start: 20070901
  2. TACROLIMUS [Concomitant]
     Indication: RENAL TRANSPLANT
  3. MYCOPHENOLATE MOFETIL [Concomitant]
     Indication: RENAL TRANSPLANT
  4. PREDNISOLONE [Concomitant]
     Indication: RENAL TRANSPLANT

REACTIONS (4)
  - CYTOMEGALOVIRUS INFECTION [None]
  - KIDNEY TRANSPLANT REJECTION [None]
  - POLYOMAVIRUS-ASSOCIATED NEPHROPATHY [None]
  - TUBULOINTERSTITIAL NEPHRITIS [None]
